FAERS Safety Report 18823148 (Version 4)
Quarter: 2021Q4

REPORT INFORMATION
  Report Type: Report from Study
  Country: FR (occurrence: FR)
  Receive Date: 20210201
  Receipt Date: 20211130
  Transmission Date: 20220303
  Serious: Yes (Hospitalization)
  Sender: FDA-Public Use
  Company Number: FR-JNJFOC-20210138547

PATIENT
  Age: 87 Year
  Sex: Male

DRUGS (22)
  1. DARATUMUMAB [Suspect]
     Active Substance: DARATUMUMAB
     Indication: Plasma cell myeloma
     Route: 058
     Dates: start: 20201218, end: 20201218
  2. DARATUMUMAB [Suspect]
     Active Substance: DARATUMUMAB
     Route: 058
     Dates: start: 20201221, end: 20201221
  3. DARATUMUMAB [Suspect]
     Active Substance: DARATUMUMAB
     Route: 058
     Dates: start: 20201231, end: 20201231
  4. DARATUMUMAB [Suspect]
     Active Substance: DARATUMUMAB
     Route: 058
     Dates: start: 20210108, end: 20210108
  5. LENALIDOMIDE [Suspect]
     Active Substance: LENALIDOMIDE
     Indication: Plasma cell myeloma
     Route: 048
     Dates: start: 20201218, end: 20210106
  6. DEXAMETHASONE [Suspect]
     Active Substance: DEXAMETHASONE
     Indication: Plasma cell myeloma
     Route: 048
     Dates: start: 20201218, end: 20210108
  7. JANUMET [Concomitant]
     Active Substance: METFORMIN HYDROCHLORIDE\SITAGLIPTIN PHOSPHATE
     Indication: Hyperglycaemia
     Route: 048
     Dates: start: 20210108
  8. ACTRAPID [Concomitant]
     Active Substance: INSULIN HUMAN
     Indication: Hyperglycaemia
     Route: 058
     Dates: start: 20210108
  9. AMLODIPINE BESYLATE [Concomitant]
     Active Substance: AMLODIPINE BESYLATE
  10. FUROSEMIDE [Concomitant]
     Active Substance: FUROSEMIDE
  11. VALACYCLOVIR HYDROCHLORIDE [Concomitant]
     Active Substance: VALACYCLOVIR HYDROCHLORIDE
  12. MAGNESIUM [Concomitant]
     Active Substance: MAGNESIUM
  13. PHOSPHORUS [Concomitant]
     Active Substance: PHOSPHORUS
  14. ATORVASTATIN [Concomitant]
     Active Substance: ATORVASTATIN
  15. FENTANYL [Concomitant]
     Active Substance: FENTANYL
     Indication: Pain
  16. DUPHALAC [Concomitant]
     Active Substance: LACTULOSE
  17. LORAZEPAM [Concomitant]
     Active Substance: LORAZEPAM
  18. METFORMIN HYDROCHLORIDE [Concomitant]
     Active Substance: METFORMIN HYDROCHLORIDE
  19. OXAZEPAM [Concomitant]
     Active Substance: OXAZEPAM
  20. COVERAM [Concomitant]
     Active Substance: AMLODIPINE\PERINDOPRIL
  21. INNOHEP [Concomitant]
     Active Substance: TINZAPARIN SODIUM
  22. ZOPICLONE [Concomitant]
     Active Substance: ZOPICLONE

REACTIONS (1)
  - Pelvic fracture [Recovered/Resolved]

NARRATIVE: CASE EVENT DATE: 20210122
